FAERS Safety Report 7668076-6 (Version None)
Quarter: 2011Q3

REPORT INFORMATION
  Report Type: 
  Country: None (occurrence: None)
  Receive Date: 20110808
  Receipt Date: 20110807
  Transmission Date: 20111222
  Serious: No
  Sender: FDA-Public Use
  Company Number: US-PFIZER INC-2011180228

PATIENT
  Sex: Female

DRUGS (2)
  1. LIPITOR [Suspect]
     Dosage: 40 MG, UNK
     Route: 048
  2. LIPITOR [Suspect]
     Dosage: UNK
     Route: 048

REACTIONS (2)
  - GINGIVAL PAIN [None]
  - BREAST PAIN [None]
